FAERS Safety Report 5247912-7 (Version None)
Quarter: 2007Q1

REPORT INFORMATION
  Report Type: 
  Country: None (occurrence: None)
  Receive Date: 20070227
  Receipt Date: 20070226
  Transmission Date: 20070707
  Serious: Yes (Other)
  Sender: FDA-Public Use
  Company Number: US-GLAXOSMITHKLINE-A0640689A

PATIENT
  Age: 42 Year
  Sex: Female
  Weight: 63 kg

DRUGS (2)
  1. COMMIT [Suspect]
     Dosage: 4MG SEE DOSAGE TEXT
     Route: 002
     Dates: start: 20050101, end: 20070101
  2. PREMARIN [Concomitant]

REACTIONS (3)
  - ASPARTATE AMINOTRANSFERASE INCREASED [None]
  - BLOOD CHOLESTEROL INCREASED [None]
  - INTENTIONAL DRUG MISUSE [None]
